FAERS Safety Report 7015761-5 (Version None)
Quarter: 2010Q3

REPORT INFORMATION
  Report Type: 
  Country: None (occurrence: None)
  Receive Date: 20100927
  Receipt Date: 20090902
  Transmission Date: 20110219
  Serious: No
  Sender: FDA-Public Use
  Company Number: US-ASTRAZENECA-2009SE11093

PATIENT
  Age: 69 Year
  Sex: Female
  Weight: 65.8 kg

DRUGS (3)
  1. ARIMIDEX [Suspect]
     Indication: BREAST CANCER
     Route: 048
     Dates: start: 20020901
  2. BLOOD PRESSURE MEDICATION [Concomitant]
  3. NIACINAMIDE [Concomitant]
     Indication: BLOOD CHOLESTEROL

REACTIONS (3)
  - ARTHRITIS [None]
  - BLOOD GLUCOSE INCREASED [None]
  - OSTEOPENIA [None]
